FAERS Safety Report 10043536 (Version 2)
Quarter: 2014Q2

REPORT INFORMATION
  Report Type: Report from Study
  Country: KR (occurrence: KR)
  Receive Date: 20140328
  Receipt Date: 20140403
  Transmission Date: 20141212
  Serious: Yes (Death, Hospitalization)
  Sender: FDA-Public Use
  Company Number: KR-SA-2014SA033888

PATIENT
  Age: 49 Year
  Sex: Female
  Weight: 53 kg

DRUGS (2)
  1. LANTUS [Suspect]
     Indication: DIABETES MELLITUS
     Dosage: DOSE:12 UNIT(S)
     Route: 058
     Dates: start: 20140214, end: 20140314
  2. DIABEX [Suspect]
     Indication: DIABETES MELLITUS
     Route: 048
     Dates: start: 20140214, end: 20140314

REACTIONS (2)
  - Septic shock [Fatal]
  - Multi-organ failure [Fatal]
